FAERS Safety Report 17829771 (Version 1)
Quarter: 2020Q2

REPORT INFORMATION
  Report Type: Spontaneous
  Country: US (occurrence: US)
  Receive Date: 20200527
  Receipt Date: 20200527
  Transmission Date: 20200714
  Serious: Yes (Disabling, Other)
  Sender: FDA-Public Use
  Company Number: None

PATIENT
  Age: 54 Year
  Sex: Female
  Weight: 85.5 kg

DRUGS (5)
  1. MAGNESIUM [Concomitant]
     Active Substance: MAGNESIUM
  2. ZYPREXA [Suspect]
     Active Substance: OLANZAPINE
     Indication: INSOMNIA
     Dates: start: 20190201, end: 20190702
  3. PROZAC [Concomitant]
     Active Substance: FLUOXETINE HYDROCHLORIDE
  4. PROZAC [Suspect]
     Active Substance: FLUOXETINE HYDROCHLORIDE
  5. FISH OIL [Concomitant]
     Active Substance: FISH OIL

REACTIONS (10)
  - Withdrawal syndrome [None]
  - Anxiety [None]
  - Vomiting [None]
  - Gait disturbance [None]
  - Insomnia [None]
  - Tinnitus [None]
  - Rash [None]
  - Hyperhidrosis [None]
  - Dependence [None]
  - Depression [None]

NARRATIVE: CASE EVENT DATE: 20190701
